FAERS Safety Report 15886223 (Version 1)
Quarter: 2019Q1

REPORT INFORMATION
  Report Type: Spontaneous
  Country: US (occurrence: US)
  Receive Date: 20190107
  Receipt Date: 20190107
  Transmission Date: 20190417
  Serious: No
  Sender: FDA-Public Use
  Company Number: None

PATIENT
  Age: 71 Year
  Sex: Female

DRUGS (1)
  1. TEMOZOLOMIDE 250 MG CAPSULE [Suspect]
     Active Substance: TEMOZOLOMIDE
     Dates: start: 201703

REACTIONS (1)
  - Bronchitis [None]

NARRATIVE: CASE EVENT DATE: 20181228
